FAERS Safety Report 9238340 (Version 1)
Quarter: 2013Q2

REPORT INFORMATION
  Report Type: Spontaneous
  Country: GB (occurrence: None)
  Receive Date: 20130416
  Receipt Date: 20130416
  Transmission Date: 20140414
  Serious: Yes (Hospitalization)
  Sender: FDA-Public Use
  Company Number: 1669872

PATIENT
  Age: 71 Year
  Sex: Female

DRUGS (3)
  1. CARBOPLATIN [Suspect]
     Indication: PRODUCT USED FOR UNKNOWN INDICATION
     Route: 042
     Dates: start: 20130327
  2. (HYDROCORTISONE) [Concomitant]
  3. (CHLORPHENAMINE MALEATE) [Concomitant]

REACTIONS (3)
  - Nausea [None]
  - Dizziness [None]
  - Blood pressure decreased [None]
